FAERS Safety Report 7797284-9 (Version None)
Quarter: 2011Q4

REPORT INFORMATION
  Report Type: 
  Country: None (occurrence: None)
  Receive Date: 20111005
  Receipt Date: 20111003
  Transmission Date: 20120403
  Serious: Yes (Disabling, Other)
  Sender: FDA-Public Use
  Company Number: PHHY2011US66112

PATIENT
  Sex: Male

DRUGS (3)
  1. EXJADE [Suspect]
     Dosage: 500 MG, QD
     Route: 048
     Dates: start: 20110921
  2. REVLIMID [Concomitant]
     Indication: MYELODYSPLASTIC SYNDROME
     Dosage: 10 MG, QD
     Route: 048
     Dates: start: 20100315, end: 20110301
  3. EXJADE [Suspect]
     Indication: IRON OVERLOAD
     Dosage: 2000 MG, QD
     Route: 048
     Dates: start: 20101103, end: 20110921

REACTIONS (3)
  - BLADDER CANCER [None]
  - BLOOD URINE PRESENT [None]
  - RENAL HAEMORRHAGE [None]
